FAERS Safety Report 13284453 (Version 1)
Quarter: 2017Q1

REPORT INFORMATION
  Report Type: Spontaneous
  Country: FR (occurrence: FR)
  Receive Date: 20170301
  Receipt Date: 20170301
  Transmission Date: 20170428
  Serious: Yes (Hospitalization, Other)
  Sender: FDA-Public Use
  Company Number: FR-BRISTOL-MYERS SQUIBB COMPANY-BMS-2017-015266

PATIENT
  Age: 92 Year
  Sex: Female

DRUGS (3)
  1. COUMADINE [Suspect]
     Active Substance: WARFARIN SODIUM
     Indication: ATRIAL FIBRILLATION
     Dosage: 3 MG, QD
     Route: 048
     Dates: start: 2016, end: 20170130
  2. INEXIUM                            /01479302/ [Suspect]
     Active Substance: ESOMEPRAZOLE MAGNESIUM
     Indication: PRODUCT USED FOR UNKNOWN INDICATION
     Dosage: UNK
     Route: 048
     Dates: start: 20170124, end: 20170129
  3. AUGMENTIN [Suspect]
     Active Substance: AMOXICILLIN\CLAVULANATE POTASSIUM
     Indication: PRODUCT USED FOR UNKNOWN INDICATION
     Dosage: 1 DF, TID
     Route: 048
     Dates: start: 20170127, end: 20170130

REACTIONS (8)
  - Confusional state [Unknown]
  - Gastrointestinal ulcer haemorrhage [Recovering/Resolving]
  - Angiodermatitis [Unknown]
  - Erysipelas [Unknown]
  - Haemorrhagic anaemia [Recovering/Resolving]
  - Packed red blood cell transfusion [Unknown]
  - Drug interaction [Unknown]
  - Overdose [Unknown]

NARRATIVE: CASE EVENT DATE: 20170131
